FAERS Safety Report 23987942 (Version 1)
Quarter: 2024Q2

REPORT INFORMATION
  Report Type: Spontaneous
  Country: FR (occurrence: FR)
  Receive Date: 20240619
  Receipt Date: 20240619
  Transmission Date: 20240716
  Serious: Yes (Hospitalization, Other)
  Sender: FDA-Public Use
  Company Number: None

PATIENT
  Age: 27 Year
  Sex: Female
  Weight: 46 kg

DRUGS (6)
  1. LEVETIRACETAM [Suspect]
     Active Substance: LEVETIRACETAM
     Indication: Frontal lobe epilepsy
     Dosage: 500 MILLIGRAM PER DAY
     Dates: start: 20230407
  2. LEVETIRACETAM [Suspect]
     Active Substance: LEVETIRACETAM
     Indication: Off label use
  3. LAMOTRIGINE [Suspect]
     Active Substance: LAMOTRIGINE
     Indication: Frontal lobe epilepsy
     Dosage: 250 MILLIGRAM PER DAY
     Dates: start: 20221211
  4. LAMOTRIGINE [Suspect]
     Active Substance: LAMOTRIGINE
     Dosage: INCREASED TO 325 MG DURING PREGNANCY
  5. CLOBAZAM [Suspect]
     Active Substance: CLOBAZAM
     Indication: Frontal lobe epilepsy
     Dosage: 10 MILLIGRAM PER DAY
     Dates: start: 20221211
  6. CLOBAZAM [Suspect]
     Active Substance: CLOBAZAM
     Dosage: INCREASED TO 15 MG DURING PREGNANCY

REACTIONS (3)
  - Maternal exposure during pregnancy [Unknown]
  - Premature delivery [Recovered/Resolved]
  - Off label use [Unknown]

NARRATIVE: CASE EVENT DATE: 20230407
